FAERS Safety Report 22057597 (Version 1)
Quarter: 2023Q1

REPORT INFORMATION
  Report Type: Spontaneous
  Country: GB (occurrence: None)
  Receive Date: 20230303
  Receipt Date: 20230303
  Transmission Date: 20230418
  Serious: Yes (Other)
  Sender: FDA-Public Use
  Company Number: 2023A032504

PATIENT
  Age: 76 Year
  Sex: Female

DRUGS (1)
  1. QUETIAPINE [Suspect]
     Active Substance: QUETIAPINE
     Indication: Product used for unknown indication
     Dosage: 300MG; ;300.0MG UNKNOWN

REACTIONS (4)
  - Fatigue [Recovered/Resolved]
  - Somnolence [Unknown]
  - Product dispensing error [Unknown]
  - Wrong product administered [Unknown]
